FAERS Safety Report 24377350 (Version 1)
Quarter: 2024Q3

REPORT INFORMATION
  Report Type: Spontaneous
  Country: FR (occurrence: FR)
  Receive Date: 20240930
  Receipt Date: 20240930
  Transmission Date: 20241017
  Serious: Yes (Hospitalization, Other)
  Sender: MICRO LABS
  Company Number: FR-862174955-ML2024-05080

PATIENT
  Age: 24 Year
  Sex: Male

DRUGS (3)
  1. ACETAZOLAMIDE [Suspect]
     Active Substance: ACETAZOLAMIDE
     Indication: Ophthalmic herpes simplex
     Dosage: PATIENT WAS STARTED ON VALACYCLOVIR, INTRAVENOUS 500 MG THEN ORAL ACETAZOLAMIDE
     Route: 042
  2. ACETAZOLAMIDE [Suspect]
     Active Substance: ACETAZOLAMIDE
     Dosage: 500MG FOLLOWED BY ORAL ACETAZOLAMID
     Route: 048
  3. VALACYCLOVIR HYDROCHLORIDE [Concomitant]
     Active Substance: VALACYCLOVIR HYDROCHLORIDE
     Indication: Ophthalmic herpes simplex

REACTIONS (5)
  - Retinopathy sickle cell [Unknown]
  - Retinal artery occlusion [Unknown]
  - Intraocular pressure decreased [Unknown]
  - Retinopathy [Unknown]
  - Retinopathy haemorrhagic [Unknown]
